FAERS Safety Report 23541399 (Version 2)
Quarter: 2024Q1

REPORT INFORMATION
  Report Type: Report from Study
  Country: US (occurrence: US)
  Receive Date: 20240219
  Receipt Date: 20240226
  Transmission Date: 20240410
  Serious: Yes (Other)
  Sender: FDA-Public Use
  Company Number: US-ABBVIE-5644637

PATIENT
  Sex: Male
  Weight: 86 kg

DRUGS (3)
  1. HUMIRA [Suspect]
     Active Substance: ADALIMUMAB
     Indication: Crohn^s disease
     Dosage: STARTED HUMIRA PROBABLY 3 TO 4 YEARS AGO
     Route: 058
     Dates: start: 20220730
  2. NEXIUM [Concomitant]
     Active Substance: ESOMEPRAZOLE MAGNESIUM
     Indication: Antacid therapy
     Route: 065
  3. ALBUTEROL [Concomitant]
     Active Substance: ALBUTEROL
     Indication: Asthma
     Route: 065

REACTIONS (5)
  - Lupus-like syndrome [Recovered/Resolved]
  - Crohn^s disease [Not Recovered/Not Resolved]
  - Pain [Recovered/Resolved]
  - Unevaluable event [Not Recovered/Not Resolved]
  - Joint swelling [Recovered/Resolved]
